FAERS Safety Report 10514504 (Version 1)
Quarter: 2014Q4

REPORT INFORMATION
  Report Type: Spontaneous
  Country: US (occurrence: US)
  Receive Date: 20141013
  Receipt Date: 20141013
  Transmission Date: 20150528
  Serious: Yes (Other)
  Sender: FDA-Public Use
  Company Number: US-BAYER-2014-148459

PATIENT
  Age: 24 Year
  Sex: Female

DRUGS (1)
  1. MIRENA [Suspect]
     Active Substance: LEVONORGESTREL
     Indication: CONTRACEPTION
     Dosage: 20 MCG/24HR, CONT
     Route: 015
     Dates: start: 20140711, end: 20140924

REACTIONS (7)
  - Device dislocation [None]
  - Fatigue [None]
  - Coital bleeding [None]
  - Pain [None]
  - Alopecia [None]
  - Genital haemorrhage [None]
  - Headache [None]
